FAERS Safety Report 8318134-8 (Version None)
Quarter: 2012Q2

REPORT INFORMATION
  Report Type: 
  Country: None (occurrence: None)
  Receive Date: 20120427
  Receipt Date: 20120420
  Transmission Date: 20120825
  Serious: Yes (Death)
  Sender: FDA-Public Use
  Company Number: FI-PFIZER INC-2012083431

PATIENT
  Age: 54 Year
  Sex: Male
  Weight: 93 kg

DRUGS (8)
  1. RAMIPRIL [Suspect]
     Indication: HYPERTENSION
     Dosage: 5 MG, 1X/DAY
     Route: 048
     Dates: start: 20110101
  2. FOLVITE [Suspect]
     Dosage: 1 MG, 1X/DAY
     Route: 048
     Dates: start: 20120121
  3. OMEPRAZOLE [Suspect]
     Indication: PROPHYLAXIS
     Dosage: 20 MG, 1X/DAY
     Route: 048
     Dates: start: 20120221
  4. CISPLATIN [Suspect]
     Indication: NON-SMALL CELL LUNG CANCER
     Dosage: 155 MG, DAY 1 OF 21 DAY CYCLE
     Route: 042
     Dates: start: 20120220
  5. QUETIAPINE [Suspect]
     Indication: INSOMNIA
     Dosage: 50 MG, 1X/DAY
     Route: 048
     Dates: start: 20120301
  6. CIRCADIN [Suspect]
     Indication: INSOMNIA
     Dosage: 2 MG, 1X/DAY
     Route: 048
     Dates: start: 20120217
  7. TEMAZEPAM [Suspect]
     Indication: INSOMNIA
     Dosage: 20 MG, AS NEEDED
     Route: 048
     Dates: start: 20111214
  8. PEMETREXED [Suspect]
     Indication: NON-SMALL CELL LUNG CANCER
     Dosage: 1050 MG, DAY 1 OF 21 DAY CYCLE
     Route: 042
     Dates: start: 20120220

REACTIONS (1)
  - DEATH [None]
